FAERS Safety Report 13176120 (Version 3)
Quarter: 2017Q4

REPORT INFORMATION
  Report Type: Report from Study
  Country: CO (occurrence: CO)
  Receive Date: 20170201
  Receipt Date: 20171128
  Transmission Date: 20180320
  Serious: Yes (Disabling, Other)
  Sender: FDA-Public Use
  Company Number: CO-REGENERON PHARMACEUTICALS, INC.-2017-11144

PATIENT

DRUGS (1)
  1. EYLEA [Suspect]
     Active Substance: AFLIBERCEPT
     Indication: RETINAL VEIN OCCLUSION
     Dosage: 2 MG, Q1MON - PATIENT RECEIVED 6 ADMINISTRATIONS IN THE LEFT EYE AND 5 IN THE RIGHT EYE
     Dates: start: 20151017, end: 20160618

REACTIONS (2)
  - Blindness unilateral [Not Recovered/Not Resolved]
  - Eye haemorrhage [Recovered/Resolved]
